FAERS Safety Report 8562011 (Version 7)
Quarter: 2014Q2

REPORT INFORMATION
  Report Type: Spontaneous
  Country: FR (occurrence: FR)
  Receive Date: 20120509
  Receipt Date: 20140609
  Transmission Date: 20141212
  Serious: Yes (Hospitalization, Other)
  Sender: FDA-Public Use
  Company Number: FR-009507513-2012SP023559

PATIENT
  Age: 68 Year
  Sex: Male
  Weight: 95 kg

DRUGS (13)
  1. VICTRELIS [Suspect]
     Indication: HEPATITIS C
     Dosage: 800 MG, TID
     Dates: start: 20110705, end: 20120321
  2. VIRAFERONPEG [Suspect]
     Indication: HEPATITIS C
     Dosage: 1.5 ?G/KG, QW
     Dates: start: 20110608, end: 20120321
  3. REBETOL [Suspect]
     Indication: HEPATITIS C
     Dosage: 600 MG, QD
     Dates: start: 20110608, end: 20120321
  4. NEORECORMON [Concomitant]
     Indication: PRODUCT USED FOR UNKNOWN INDICATION
     Dosage: 30000 IU, BIW
     Dates: start: 20110705, end: 20120321
  5. NEUPOGEN [Concomitant]
     Indication: PRODUCT USED FOR UNKNOWN INDICATION
     Dosage: 30000 IU, UNK
     Dates: end: 20120321
  6. ALTEIS [Concomitant]
     Indication: PRODUCT USED FOR UNKNOWN INDICATION
     Dosage: 20 MG, QD
  7. BISOPROLOL [Concomitant]
     Indication: PRODUCT USED FOR UNKNOWN INDICATION
     Dosage: 10 MG, QD
  8. PLAVIX [Concomitant]
     Indication: PRODUCT USED FOR UNKNOWN INDICATION
     Dosage: 75 MG, QD
  9. ALDACTONE TABLETS [Concomitant]
     Indication: PRODUCT USED FOR UNKNOWN INDICATION
     Dosage: 25 MG, QD
  10. LASILIX [Concomitant]
     Indication: PRODUCT USED FOR UNKNOWN INDICATION
     Dosage: 40 MG, BID
  11. EUPANTOL [Concomitant]
     Indication: PRODUCT USED FOR UNKNOWN INDICATION
     Dosage: UNK
  12. SPECIAFOLDINE [Concomitant]
     Indication: PRODUCT USED FOR UNKNOWN INDICATION
     Dosage: 5 MG, QD
  13. CONTRAMAL [Concomitant]
     Indication: PAIN

REACTIONS (4)
  - Liver disorder [Recovered/Resolved with Sequelae]
  - Hepatic encephalopathy [Recovered/Resolved]
  - Cardiac failure [Recovering/Resolving]
  - Hepatic encephalopathy [Recovered/Resolved]
